FAERS Safety Report 4723435-6 (Version None)
Quarter: 2005Q3

REPORT INFORMATION
  Report Type: 
  Country: None (occurrence: None)
  Receive Date: 20050725
  Receipt Date: 20050610
  Transmission Date: 20060218
  Serious: Yes (Life-Threatening, Other)
  Sender: FDA-Public Use
  Company Number: 2005AP03301

PATIENT
  Age: 20365 Day
  Sex: Male
  Weight: 70 kg

DRUGS (14)
  1. ANAPEINE INJECTION [Suspect]
     Indication: EPIDURAL ANAESTHESIA
     Route: 008
     Dates: start: 20050524, end: 20050524
  2. ANAPEINE INJECTION [Suspect]
     Dosage: EITHER GIVEN EVERY OTHER DAY OR ONCE IN 3 DAYS
     Route: 008
     Dates: start: 20050526, end: 20050526
  3. LIDOCAINE [Concomitant]
     Indication: EPIDURAL ANAESTHESIA
     Route: 008
     Dates: start: 20050507, end: 20050523
  4. LIDOCAINE [Concomitant]
     Route: 008
     Dates: start: 20050511, end: 20050511
  5. ANAPEINE [Concomitant]
     Indication: EPIDURAL ANAESTHESIA
     Route: 008
     Dates: start: 20050426, end: 20050426
  6. ANAPEINE [Concomitant]
     Route: 008
     Dates: start: 20050430, end: 20050430
  7. ANAPEINE [Concomitant]
     Route: 008
     Dates: start: 20050502, end: 20050502
  8. ANAPEINE [Concomitant]
     Route: 008
     Dates: start: 20050509, end: 20050509
  9. YOKU-KAN-SAN [Concomitant]
     Indication: LUMBAR SPINAL STENOSIS
     Route: 048
     Dates: start: 20050422, end: 20050429
  10. VOLMAGEN [Concomitant]
     Indication: LUMBAR SPINAL STENOSIS
     Route: 054
     Dates: start: 20050422
  11. LOPEMIN [Concomitant]
     Indication: GASTROENTERITIS
     Route: 048
     Dates: start: 20050502, end: 20050515
  12. BIOFERMIN [Concomitant]
     Indication: GASTROENTERITIS
     Route: 048
     Dates: start: 20050502, end: 20050515
  13. HALCION [Concomitant]
     Indication: INSOMNIA
     Route: 048
     Dates: start: 20050516, end: 20050518
  14. SILECE [Concomitant]
     Indication: INSOMNIA
     Route: 048
     Dates: start: 20050516, end: 20050518

REACTIONS (3)
  - CONVULSION [None]
  - DIPLEGIA [None]
  - DRUG INEFFECTIVE [None]
